FAERS Safety Report 13023089 (Version 1)
Quarter: 2016Q4

REPORT INFORMATION
  Report Type: Spontaneous
  Country: US (occurrence: US)
  Receive Date: 20161213
  Receipt Date: 20161213
  Transmission Date: 20170207
  Serious: No
  Sender: FDA-Public Use
  Company Number: US-TEVA-694393USA

PATIENT
  Age: 85 Year
  Sex: Female

DRUGS (1)
  1. AZITHROMYCIN ANHYDROUS. [Suspect]
     Active Substance: AZITHROMYCIN ANHYDROUS
     Indication: TOOTH EXTRACTION
     Dosage: 200MG/5ML, 2 TEASPOONS ONCE DAILY, BUT ONLY TAKING ONE TEASPOON
     Route: 048
     Dates: start: 20160808

REACTIONS (2)
  - Nausea [Unknown]
  - Intentional product use issue [Unknown]

NARRATIVE: CASE EVENT DATE: 20160808
